FAERS Safety Report 20024003 (Version 1)
Quarter: 2021Q4

REPORT INFORMATION
  Report Type: Spontaneous
  Country: US (occurrence: US)
  Receive Date: 20211102
  Receipt Date: 20211102
  Transmission Date: 20220303
  Serious: Yes (Life-Threatening, Hospitalization, Other)
  Sender: FDA-Public Use
  Company Number: US-MLMSERVICE-20211019-3174697-1

PATIENT
  Age: 14 Year
  Sex: Female
  Weight: 56.4 kg

DRUGS (3)
  1. LIDOCAINE [Suspect]
     Active Substance: LIDOCAINE
     Indication: Local anaesthesia
     Dosage: 3 MILLILITER, SINGLE, INJECTION OF 3 ML OF 1% LIDOCAINE WITH 1:100,000 EPINEPHRINE INTO THE REGION O
     Route: 065
  2. OXYMETAZOLINE [Concomitant]
     Active Substance: OXYMETAZOLINE
     Indication: Product used for unknown indication
     Dosage: UNK
     Route: 065
  3. EPINEPHRINE [Concomitant]
     Active Substance: EPINEPHRINE
     Indication: Product used for unknown indication
     Dosage: 3 MILLILITER, SINGLE, INJECTION OF 3 ML OF 1% LIDOCAINE WITH 1:100,000 EPINEPHRINE INTO THE REGION O
     Route: 065

REACTIONS (6)
  - Left ventricular dysfunction [Recovering/Resolving]
  - Trigemino-cardiac reflex [Recovering/Resolving]
  - Pulmonary oedema [Recovering/Resolving]
  - Electrocardiogram ST segment depression [Recovering/Resolving]
  - Cardiac arrest [Recovered/Resolved]
  - Sinus bradycardia [Recovered/Resolved]
